FAERS Safety Report 13831076 (Version 4)
Quarter: 2018Q1

REPORT INFORMATION
  Report Type: Spontaneous
  Country: IT (occurrence: IT)
  Receive Date: 20170803
  Receipt Date: 20180327
  Transmission Date: 20180508
  Serious: Yes (Hospitalization)
  Sender: FDA-Public Use
  Company Number: IT-PFIZER INC-2017329529

PATIENT
  Age: 76 Year
  Sex: Female

DRUGS (3)
  1. ALPRAZOLAM. [Suspect]
     Active Substance: ALPRAZOLAM
     Indication: INTENTIONAL SELF-INJURY
     Dosage: 5 MG, SINGLE
     Route: 048
  2. FLURAZEPAM [Suspect]
     Active Substance: FLURAZEPAM\FLURAZEPAM HYDROCHLORIDE
     Indication: INTENTIONAL SELF-INJURY
     Dosage: 14 DF, SINGLE
     Route: 048
  3. TRITTICO [Suspect]
     Active Substance: TRAZODONE HYDROCHLORIDE
     Indication: INTENTIONAL SELF-INJURY
     Dosage: 30 DF, SINGLE
     Route: 048

REACTIONS (4)
  - Intentional self-injury [Recovered/Resolved]
  - Sopor [Recovered/Resolved]
  - Drug abuse [Recovered/Resolved]
  - Intentional overdose [Recovered/Resolved]

NARRATIVE: CASE EVENT DATE: 20170620
